FAERS Safety Report 8053121-9 (Version None)
Quarter: 2011Q4

REPORT INFORMATION
  Report Type: 
  Country: None (occurrence: None)
  Receive Date: 20111213
  Receipt Date: 20111111
  Transmission Date: 20120403
  Serious: No
  Sender: FDA-Public Use
  Company Number: 2011SP053450

PATIENT
  Age: 31 Year
  Sex: Female

DRUGS (4)
  1. SAPHRIS [Suspect]
     Indication: MANIA
     Dosage: 8 MG;QD;SL
     Route: 060
     Dates: start: 20111101
  2. KLONOPIN [Concomitant]
  3. LITHIUM [Concomitant]
  4. LAMICTAL [Concomitant]

REACTIONS (3)
  - HYPOAESTHESIA ORAL [None]
  - INAPPROPRIATE SCHEDULE OF DRUG ADMINISTRATION [None]
  - UNDERDOSE [None]
